FAERS Safety Report 5374938-5 (Version None)
Quarter: 2007Q2

REPORT INFORMATION
  Report Type: 
  Country: None (occurrence: None)
  Receive Date: 20070629
  Receipt Date: 20070619
  Transmission Date: 20071010
  Serious: Yes (Other)
  Sender: FDA-Public Use
  Company Number: BE-GILEAD-2007-0012464

PATIENT

DRUGS (1)
  1. VIREAD [Suspect]

REACTIONS (1)
  - CARDIAC FAILURE [None]
